FAERS Safety Report 6237560-4 (Version None)
Quarter: 2009Q2

REPORT INFORMATION
  Report Type: 
  Country: None (occurrence: None)
  Receive Date: 20090617
  Receipt Date: 20090602
  Transmission Date: 20091009
  Serious: Yes (Other)
  Sender: FDA-Public Use
  Company Number: 2009RR-24320

PATIENT
  Age: 80 Year
  Sex: Male

DRUGS (3)
  1. ROPINIROLE [Suspect]
     Indication: PARKINSON'S DISEASE
     Dosage: 6 MG, QD
  2. CARBILEV [Suspect]
     Indication: PARKINSON'S DISEASE
     Dosage: 850 MG, QD
  3. TRAZODONE HCL [Concomitant]

REACTIONS (2)
  - HYPERSEXUALITY [None]
  - SEXUAL DYSFUNCTION [None]
